FAERS Safety Report 5892969-3 (Version None)
Quarter: 2008Q3

REPORT INFORMATION
  Report Type: 
  Country: None (occurrence: None)
  Receive Date: 20080922
  Receipt Date: 20080922
  Transmission Date: 20090109
  Serious: Yes (Other)
  Sender: FDA-Public Use
  Company Number: None

PATIENT
  Age: 16 Year
  Sex: Female
  Weight: 57.1532 kg

DRUGS (2)
  1. SINGULAIR [Suspect]
     Indication: BRONCHOSPASM
     Dates: start: 20070907, end: 20080630
  2. SINGULAIR [Suspect]
     Indication: RHINITIS ALLERGIC
     Dates: start: 20070907, end: 20080630

REACTIONS (3)
  - ABNORMAL BEHAVIOUR [None]
  - MOOD SWINGS [None]
  - NEGATIVE THOUGHTS [None]
